FAERS Safety Report 20332910 (Version 3)
Quarter: 2022Q1

REPORT INFORMATION
  Report Type: Report from Study
  Country: JP (occurrence: JP)
  Receive Date: 20220113
  Receipt Date: 20220325
  Transmission Date: 20220423
  Serious: Yes (Death, Other)
  Sender: FDA-Public Use
  Company Number: JP-BRISTOL-MYERS SQUIBB COMPANY-BMS-2021-144866

PATIENT
  Age: 70 Year
  Sex: Male
  Weight: 64 kg

DRUGS (23)
  1. NIVOLUMAB [Suspect]
     Active Substance: NIVOLUMAB
     Indication: Metastatic renal cell carcinoma
     Dosage: 240 MILLIGRAM, ONE TIME DOSE
     Route: 041
     Dates: start: 20201013, end: 20201013
  2. NIVOLUMAB [Suspect]
     Active Substance: NIVOLUMAB
     Dosage: 240 MILLIGRAM, ONE TIME DOSE
     Route: 041
     Dates: start: 20201104, end: 20201104
  3. NIVOLUMAB [Suspect]
     Active Substance: NIVOLUMAB
     Dosage: 240 MILLIGRAM, ONE TIME DOSE
     Route: 041
     Dates: start: 20201125, end: 20201125
  4. NIVOLUMAB [Suspect]
     Active Substance: NIVOLUMAB
     Dosage: 240 MILLIGRAM, ONE TIME DOSE
     Route: 041
     Dates: start: 20201216, end: 20201216
  5. IPILIMUMAB [Suspect]
     Active Substance: IPILIMUMAB
     Indication: Metastatic renal cell carcinoma
     Dosage: 1 MILLIGRAM/KILOGRAM, ONE TIME DOSE
     Route: 041
     Dates: start: 20201013, end: 20201013
  6. IPILIMUMAB [Suspect]
     Active Substance: IPILIMUMAB
     Dosage: 1 MILLIGRAM/KILOGRAM, ONE TIME DOSE
     Route: 041
     Dates: start: 20201104, end: 20201104
  7. IPILIMUMAB [Suspect]
     Active Substance: IPILIMUMAB
     Dosage: 1 MILLIGRAM/KILOGRAM, ONE TIME DOSE
     Route: 041
     Dates: start: 20201125, end: 20201125
  8. IPILIMUMAB [Suspect]
     Active Substance: IPILIMUMAB
     Dosage: 1 MILLIGRAM/KILOGRAM, ONE TIME DOSE
     Route: 041
     Dates: start: 20201216, end: 20201216
  9. PREDNISOLONE ACETATE [Concomitant]
     Active Substance: PREDNISOLONE ACETATE
     Indication: Immune-mediated hepatitis
     Dosage: 40 MILLIGRAM DAILY
     Route: 048
     Dates: start: 20210119, end: 20210126
  10. PREDNISOLONE ACETATE [Concomitant]
     Active Substance: PREDNISOLONE ACETATE
     Dosage: 20MG IN THE MORNING, 10MG DURING THE DAY
     Route: 048
     Dates: start: 20210127, end: 20210209
  11. PREDNISOLONE ACETATE [Concomitant]
     Active Substance: PREDNISOLONE ACETATE
     Dosage: 20MG IN THE MORNING, 5MG DURING THE DAY
     Route: 048
     Dates: start: 20210210, end: 20210223
  12. PREDNISOLONE ACETATE [Concomitant]
     Active Substance: PREDNISOLONE ACETATE
     Dosage: 20 MILLIGRAM
     Route: 048
     Dates: start: 20210224, end: 20210309
  13. PREDNISOLONE ACETATE [Concomitant]
     Active Substance: PREDNISOLONE ACETATE
     Dosage: 17.5 MILLIGRAM
     Route: 048
     Dates: start: 20210310, end: 20210323
  14. PREDNISOLONE ACETATE [Concomitant]
     Active Substance: PREDNISOLONE ACETATE
     Dosage: 15MG IN THE MORNING
     Route: 048
     Dates: start: 20210324, end: 20210629
  15. PREDNISOLONE ACETATE [Concomitant]
     Active Substance: PREDNISOLONE ACETATE
     Dosage: 12.5MG IN THE MORNING
     Route: 048
     Dates: start: 20210630, end: 20210914
  16. PREDNISOLONE ACETATE [Concomitant]
     Active Substance: PREDNISOLONE ACETATE
     Dosage: 10 MILLIGRAM
     Route: 048
     Dates: start: 20210915
  17. PREDNISOLONE ACETATE [Concomitant]
     Active Substance: PREDNISOLONE ACETATE
     Indication: Immune-mediated hepatitis
     Dosage: 60 MILLIGRAM, QD
     Route: 042
     Dates: start: 20210113, end: 20210118
  18. LINAGLIPTIN [Concomitant]
     Active Substance: LINAGLIPTIN
     Indication: Type 2 diabetes mellitus
     Dosage: 5MG IN THE MORNING
     Route: 048
     Dates: start: 20210203
  19. MITIGLINIDE CALCIUM ANHYDROUS [Concomitant]
     Active Substance: MITIGLINIDE CALCIUM ANHYDROUS
     Indication: Type 2 diabetes mellitus
     Dosage: 5 MILLIGRAM, TID
     Route: 048
     Dates: start: 20210331
  20. ALESION [Concomitant]
     Active Substance: EPINASTINE HYDROCHLORIDE
     Indication: Rash pruritic
     Dosage: 20MG BEFORE GOING TO BED
     Route: 048
     Dates: start: 20201125, end: 20201215
  21. OLOPATADINE HYDROCHLORIDE OD [Concomitant]
     Indication: Rash pruritic
     Dosage: 5MG IN THE MORNING AND 5MG IN THE EVENING
     Route: 048
     Dates: start: 20201216, end: 20210120
  22. GLYCOSAMINOGLYCANS [Concomitant]
     Active Substance: GLYCOSAMINOGLYCANS
     Indication: Rash pruritic
     Dosage: SMEAR SEVERAL TIMES A DAY
     Route: 065
     Dates: start: 20201125, end: 20210120
  23. BETAMETHASONE DIPROPIONATE [Concomitant]
     Active Substance: BETAMETHASONE DIPROPIONATE
     Indication: Rash pruritic
     Dosage: UNK, BID
     Route: 061
     Dates: start: 20201125, end: 20210120

REACTIONS (1)
  - Death [Fatal]

NARRATIVE: CASE EVENT DATE: 20211222
